FAERS Safety Report 6955619-0 (Version None)
Quarter: 2010Q3

REPORT INFORMATION
  Report Type: 
  Country: None (occurrence: None)
  Receive Date: 20100830
  Receipt Date: 20100820
  Transmission Date: 20110219
  Serious: Yes (Hospitalization, Other)
  Sender: FDA-Public Use
  Company Number: JP-PFIZER INC-2010088036

PATIENT
  Age: 56 Year
  Sex: Female
  Weight: 71 kg

DRUGS (8)
  1. GABAPEN [Suspect]
     Dosage: 200 MG, 3X/DAY
     Route: 048
     Dates: start: 20100501, end: 20100709
  2. CELECOX [Suspect]
     Dosage: 200 MG, 2X/DAY
     Route: 048
     Dates: start: 20100501, end: 20100709
  3. TAKEPRON [Suspect]
     Dosage: 15 MG, 1X/DAY
     Route: 048
     Dates: start: 20100501, end: 20100709
  4. LIPLE [Suspect]
     Dosage: UNK
     Dates: start: 20100501
  5. LIPITOR [Concomitant]
     Dosage: 5 MG, 1X/DAY
     Route: 048
     Dates: start: 19900101
  6. URSO 250 [Concomitant]
     Dosage: 200 MG, 3X/DAY
     Route: 048
     Dates: start: 19900101
  7. NU LOTAN [Concomitant]
     Dosage: 25 MG, 1X/DAY
     Route: 048
     Dates: start: 20100201
  8. DIAZEPAM [Concomitant]
     Dosage: 5 MG, AS NEEDED
     Route: 048

REACTIONS (3)
  - HAEMORRHAGE SUBCUTANEOUS [None]
  - PLATELET COUNT DECREASED [None]
  - SYSTEMIC LUPUS ERYTHEMATOSUS [None]
